FAERS Safety Report 8606964-4 (Version None)
Quarter: 2012Q3

REPORT INFORMATION
  Report Type: 
  Country: None (occurrence: None)
  Receive Date: 20120820
  Receipt Date: 20120815
  Transmission Date: 20120928
  Serious: No
  Sender: FDA-Public Use
  Company Number: US-PFIZER INC-2012200605

PATIENT

DRUGS (2)
  1. NEURONTIN [Suspect]
  2. CELEBREX [Suspect]

REACTIONS (1)
  - PAIN [None]
